FAERS Safety Report 13405627 (Version 1)
Quarter: 2017Q2

REPORT INFORMATION
  Report Type: Spontaneous
  Country: US (occurrence: US)
  Receive Date: 20170405
  Receipt Date: 20170405
  Transmission Date: 20170830
  Serious: Yes (Hospitalization)
  Sender: FDA-Public Use
  Company Number: US-PROCTER_AND_GAMBLE-GS17036537

PATIENT
  Sex: Female

DRUGS (4)
  1. CREST PRO-HEALTH (STANNOUS FLUORIDE) [Suspect]
     Active Substance: STANNOUS FLUORIDE
     Dosage: COVER HALF OF BRUSH HEAD, 2-3 TIMES A DAY
     Route: 002
  2. CREST 3D WHITE LUXE [Suspect]
     Active Substance: POTASSIUM NITRATE\SODIUM FLUORIDE
  3. CREST [Suspect]
     Active Substance: SODIUM FLUORIDE
     Dosage: COVER HALF OF BRUSH HEAD, 2-3 TIMES A DAY
     Route: 002
  4. CREST 3D WHITE [Suspect]
     Active Substance: SODIUM FLUORIDE
     Dosage: COVER HALF OF BRUSH HEAD, 2-3 TIMES A DAY
     Route: 002

REACTIONS (4)
  - Angioedema [Recovered/Resolved]
  - Pruritus [Recovered/Resolved]
  - Anaphylactic reaction [Recovered/Resolved]
  - Swollen tongue [Recovered/Resolved]
